FAERS Safety Report 14663289 (Version 4)
Quarter: 2018Q2

REPORT INFORMATION
  Report Type: Spontaneous
  Country: US (occurrence: US)
  Receive Date: 20180321
  Receipt Date: 20180422
  Transmission Date: 20180711
  Serious: Yes (Death, Other)
  Sender: FDA-Public Use
  Company Number: US-APOTEX-2018AP008598

PATIENT
  Sex: Male

DRUGS (2)
  1. PAXIL [Suspect]
     Active Substance: PAROXETINE HYDROCHLORIDE
     Indication: DEPRESSION
     Dosage: UNK
     Route: 048
  2. PAXIL [Suspect]
     Active Substance: PAROXETINE HYDROCHLORIDE
     Indication: ANXIETY

REACTIONS (16)
  - Completed suicide [Fatal]
  - Feeling of despair [Unknown]
  - Psychiatric symptom [Unknown]
  - Decreased appetite [Unknown]
  - Anxiety [Unknown]
  - Insomnia [Unknown]
  - Partner stress [Unknown]
  - Depression [Fatal]
  - Weight decreased [Unknown]
  - Divorced [Unknown]
  - Alcohol use [Unknown]
  - Homicide [Unknown]
  - Feeling abnormal [Unknown]
  - Staring [Unknown]
  - Discomfort [Unknown]
  - Mania [Unknown]
